FAERS Safety Report 20490481 (Version 1)
Quarter: 2022Q1

REPORT INFORMATION
  Report Type: Spontaneous
  Country: US (occurrence: None)
  Receive Date: 20220218
  Receipt Date: 20220218
  Transmission Date: 20220424
  Serious: No
  Sender: FDA-Public Use
  Company Number: 2022A035658

PATIENT
  Age: 21344 Day
  Weight: 145.2 kg

DRUGS (1)
  1. BYDUREON BCISE [Suspect]
     Active Substance: EXENATIDE
     Indication: Type 2 diabetes mellitus
     Route: 058

REACTIONS (3)
  - Incorrect dose administered by device [Unknown]
  - Visual impairment [Unknown]
  - Device leakage [Unknown]

NARRATIVE: CASE EVENT DATE: 20220120
